FAERS Safety Report 18198406 (Version 1)
Quarter: 2020Q3

REPORT INFORMATION
  Report Type: Spontaneous
  Country: US (occurrence: US)
  Receive Date: 20200826
  Receipt Date: 20200826
  Transmission Date: 20201103
  Serious: No
  Sender: FDA-Public Use
  Company Number: None

PATIENT

DRUGS (2)
  1. BUPRENORPHINE 2MG/NALOXONE 0.5 MG (PMS GENERICC) [Suspect]
     Active Substance: BUPRENORPHINE\NALOXONE
  2. HYDROMORPHONE 8MG (PMS GENERIC) [Suspect]
     Active Substance: HYDROMORPHONE

REACTIONS (5)
  - Product appearance confusion [None]
  - Wrong product stored [None]
  - Product shape issue [None]
  - Wrong product administered [None]
  - Product size issue [None]
